FAERS Safety Report 9629468 (Version 2)
Quarter: 2015Q2

REPORT INFORMATION
  Report Type: Report from Study
  Country: US (occurrence: US)
  Receive Date: 20131017
  Receipt Date: 20150413
  Transmission Date: 20150821
  Serious: Yes (Hospitalization)
  Sender: FDA-Public Use
  Company Number: US-NOVOPROD-389752

PATIENT
  Age: 58 Year
  Sex: Male
  Weight: 75.11 kg

DRUGS (1)
  1. NORDITROPIN [Suspect]
     Active Substance: SOMATROPIN
     Indication: HYPOPITUITARISM
     Dosage: UNKNOWN
     Route: 058
     Dates: start: 20010701, end: 201305

REACTIONS (2)
  - Pituitary neoplasm malignant recurrent [Unknown]
  - Pituitary cancer metastatic [Unknown]

NARRATIVE: CASE EVENT DATE: 20130611
